FAERS Safety Report 5144241-7 (Version None)
Quarter: 2006Q4

REPORT INFORMATION
  Report Type: 
  Country: None (occurrence: None)
  Receive Date: 20061030
  Receipt Date: 20061019
  Transmission Date: 20070319
  Serious: Yes (Other)
  Sender: FDA-Public Use
  Company Number: BR-2006-032508

PATIENT
  Sex: Female

DRUGS (1)
  1. MIRENA [Suspect]
     Indication: DRUG USE FOR UNKNOWN INDICATION
     Dosage: 20 UG/DAY, CONT, INTRA-UTERINE
     Route: 015

REACTIONS (3)
  - COMPLICATION OF DEVICE INSERTION [None]
  - HYPOTENSION [None]
  - PROCEDURAL PAIN [None]
